FAERS Safety Report 9815637 (Version 3)
Quarter: 2014Q1

REPORT INFORMATION
  Report Type: Spontaneous
  Country: US (occurrence: US)
  Receive Date: 20140114
  Receipt Date: 20140312
  Transmission Date: 20141002
  Serious: No
  Sender: FDA-Public Use
  Company Number: US-TEVA-455633USA

PATIENT
  Sex: Female
  Weight: 82.63 kg

DRUGS (3)
  1. PARAGARD 380A [Suspect]
     Indication: CONTRACEPTION
     Route: 015
     Dates: start: 20111122
  2. BIRTH CONTROL [Concomitant]
     Indication: VAGINAL HAEMORRHAGE
  3. ZOLOFT [Concomitant]
     Indication: ANXIETY

REACTIONS (1)
  - Vaginal haemorrhage [Recovered/Resolved]
